FAERS Safety Report 8631471 (Version 3)
Quarter: 2014Q2

REPORT INFORMATION
  Report Type: Spontaneous
  Country: US (occurrence: US)
  Receive Date: 20120622
  Receipt Date: 20140613
  Transmission Date: 20141212
  Serious: Yes (Hospitalization, Other)
  Sender: FDA-Public Use
  Company Number: US-RB-041517-12

PATIENT
  Age: 50 Year
  Sex: Male

DRUGS (5)
  1. SUBOXONE FILM [Suspect]
     Indication: DRUG DEPENDENCE
     Dosage: 1/2 FILM TWICE DAILY - SUBLINGUAL FILM
     Route: 060
     Dates: start: 2011, end: 201206
  2. SUBOXONE FILM [Suspect]
     Dosage: SUBLINGUAL FILM - 1/2 FILM TWICE DAILY
     Route: 060
     Dates: start: 201206
  3. SUBOXONE TABLET [Suspect]
     Indication: DRUG DEPENDENCE
     Dosage: DOSING DETAILS UNKNOWN
     Route: 060
     Dates: start: 2010
  4. CIGARETTES [Concomitant]
     Indication: NICOTINE DEPENDENCE
     Dosage: 20 DAILY
     Route: 065
     Dates: end: 201206
  5. CIGARETTES [Concomitant]
     Dosage: 20 DAILY
     Route: 065
     Dates: start: 201207

REACTIONS (11)
  - Wrong technique in drug usage process [Not Recovered/Not Resolved]
  - Dizziness [Recovered/Resolved]
  - Anxiety [Not Recovered/Not Resolved]
  - Coronary artery occlusion [Recovered/Resolved]
  - Intentional product misuse [Not Recovered/Not Resolved]
  - Incision site pain [Recovered/Resolved]
  - Myocardial infarction [Recovered/Resolved]
  - Procedural pain [Recovered/Resolved]
  - Pyrexia [Recovered/Resolved]
  - Feeling abnormal [Recovered/Resolved]
  - Prostatomegaly [Not Recovered/Not Resolved]
